FAERS Safety Report 5181369-X (Version None)
Quarter: 2006Q4

REPORT INFORMATION
  Report Type: 
  Country: None (occurrence: None)
  Receive Date: 20061220
  Receipt Date: 20060103
  Transmission Date: 20070319
  Serious: No
  Sender: FDA-Public Use
  Company Number: US-GLAXOSMITHKLINE-A0587411A

PATIENT
  Age: 51 Year
  Sex: Female

DRUGS (2)
  1. COMMIT [Suspect]
     Dates: start: 20060102, end: 20060102
  2. NICORETTE (MINT) [Suspect]

REACTIONS (1)
  - HICCUPS [None]
